FAERS Safety Report 9052235 (Version 1)
Quarter: 2013Q1

REPORT INFORMATION
  Report Type: Spontaneous
  Country: GB (occurrence: GB)
  Receive Date: 20130206
  Receipt Date: 20130206
  Transmission Date: 20140127
  Serious: Yes (Other)
  Sender: FDA-Public Use
  Company Number: GB-RANBAXY-2013R1-64838

PATIENT
  Age: 24 Year
  Sex: Female
  Weight: 59.1 kg

DRUGS (2)
  1. AMOXICILLIN CLAVULANATE [Suspect]
     Indication: ACUTE SINUSITIS
     Dosage: 10 ML, TID
     Route: 048
     Dates: start: 20130108
  2. DEPO-PROVERA [Concomitant]
     Indication: PRODUCT USED FOR UNKNOWN INDICATION
     Dosage: UNK
     Route: 065

REACTIONS (4)
  - Dizziness [Recovered/Resolved]
  - Malaise [Recovered/Resolved]
  - Loss of consciousness [Recovered/Resolved]
  - Chills [Recovered/Resolved]
